FAERS Safety Report 9344788 (Version 1)
Quarter: 2013Q2

REPORT INFORMATION
  Report Type: Spontaneous
  Country: FR (occurrence: FR)
  Receive Date: 20130612
  Receipt Date: 20130612
  Transmission Date: 20140414
  Serious: Yes (Death, Hospitalization)
  Sender: FDA-Public Use
  Company Number: FR-TEVA-411400ISR

PATIENT
  Age: 90 Year
  Sex: Female
  Weight: 40 kg

DRUGS (3)
  1. FUROSEMIDE TEVA 40 MG [Suspect]
     Dosage: .5 TABLET DAILY; HALF-TABLET AND THEN 1 TABLET DAILY
     Dates: start: 2013
  2. FUROSEMIDE TEVA 40 MG [Suspect]
     Dosage: 1 TABLET DAILY; HALF-TABLET AND THEN 1 TABLET DAILY
     Dates: start: 2013
  3. DIGOXIN [Concomitant]

REACTIONS (3)
  - Renal failure [Unknown]
  - Respiratory failure [Unknown]
  - Cardiac arrest [Fatal]
